FAERS Safety Report 5113020-9 (Version None)
Quarter: 2006Q3

REPORT INFORMATION
  Report Type: 
  Country: None (occurrence: None)
  Receive Date: 20060920
  Receipt Date: 20060912
  Transmission Date: 20061208
  Serious: Yes (Other)
  Sender: FDA-Public Use
  Company Number: 163-21880-06090407

PATIENT
  Age: 62 Year
  Sex: Male

DRUGS (4)
  1. REVLIMID [Suspect]
     Indication: MULTIPLE MYELOMA
     Dosage: SEE IMAGE
     Route: 048
     Dates: start: 20060209
  2. REVLIMID [Suspect]
     Indication: MULTIPLE MYELOMA
     Dosage: SEE IMAGE
     Route: 048
     Dates: start: 20060526
  3. LOVENOX [Concomitant]
  4. COUMADIN [Concomitant]

REACTIONS (3)
  - ARRHYTHMIA [None]
  - CARDIAC ABLATION [None]
  - DEEP VEIN THROMBOSIS [None]
